FAERS Safety Report 9220540 (Version 1)
Quarter: 2013Q2

REPORT INFORMATION
  Report Type: Spontaneous
  Country: IE (occurrence: IE)
  Receive Date: 20130409
  Receipt Date: 20130409
  Transmission Date: 20140414
  Serious: Yes (Death, Life-Threatening, Hospitalization)
  Sender: FDA-Public Use
  Company Number: IE-ABBOTT-12P-229-0978304-00

PATIENT
  Age: 37 Year
  Sex: Male
  Weight: 70 kg

DRUGS (2)
  1. HUMIRA [Suspect]
     Indication: SERONEGATIVE ARTHRITIS
     Dosage: 40 MG FREQUENCY NOT REPORTED
     Route: 058
     Dates: start: 20110924
  2. HUMIRA [Suspect]
     Dosage: EVERY 2 WEEKS
     Dates: start: 201106, end: 201206

REACTIONS (2)
  - Prostate cancer [Fatal]
  - Prostate cancer metastatic [Not Recovered/Not Resolved]
